FAERS Safety Report 4564985-5 (Version None)
Quarter: 2005Q1

REPORT INFORMATION
  Report Type: 
  Country: None (occurrence: None)
  Receive Date: 20050126
  Receipt Date: 20050113
  Transmission Date: 20050727
  Serious: Yes (Death)
  Sender: FDA-Public Use
  Company Number: 2004063892

PATIENT
  Age: 23 Year
  Sex: Male

DRUGS (4)
  1. SERTRALINE HCL [Suspect]
     Indication: ILL-DEFINED DISORDER
  2. MOCLOBEMIDE (MOCLOBEMIDE) [Suspect]
     Indication: ILL-DEFINED DISORDER
     Dosage: ORAL
     Route: 048
  3. NEOCITRAN (ACETANILIDE, ASCORBIC ACID, PHENIRAMINE MALEATE, PHENYLEPHR [Suspect]
     Indication: ILL-DEFINED DISORDER
     Dosage: 10 EMPTY PACKETS
  4. GUAIFENESIN(GUAIFENESIN) [Suspect]
     Indication: ILL-DEFINED DISORDER
     Dosage: 250 ML

REACTIONS (3)
  - HEAD INJURY [None]
  - MULTIPLE DRUG OVERDOSE [None]
  - PULMONARY CONGESTION [None]
